FAERS Safety Report 6523871-1 (Version None)
Quarter: 2009Q4

REPORT INFORMATION
  Report Type: 
  Country: None (occurrence: None)
  Receive Date: 20091231
  Receipt Date: 20091228
  Transmission Date: 20100525
  Serious: Yes (Death, Hospitalization)
  Sender: FDA-Public Use
  Company Number: FR-ASTRAZENECA-2009SE33639

PATIENT
  Age: 21606 Day
  Sex: Male

DRUGS (12)
  1. PULMICORT [Suspect]
     Route: 055
     Dates: end: 20080514
  2. ALDACTONE [Suspect]
     Route: 048
     Dates: start: 20080422, end: 20080514
  3. COVERSYL [Suspect]
     Route: 048
     Dates: end: 20080514
  4. ALLOPURINOL [Suspect]
     Route: 048
     Dates: end: 20080514
  5. KALEORID [Suspect]
     Route: 048
     Dates: end: 20080514
  6. LASILILIX SPECIAL [Suspect]
     Route: 048
     Dates: end: 20080514
  7. SPIRIVA [Suspect]
     Route: 055
     Dates: end: 20080514
  8. TAHOR [Concomitant]
     Route: 048
  9. KREDEX [Concomitant]
     Route: 048
  10. INIPOMP [Concomitant]
     Route: 048
  11. LEVOTHYROXINE SODIUM [Concomitant]
     Route: 048
  12. PREVISCAN [Concomitant]
     Route: 048

REACTIONS (2)
  - HYPERKALAEMIA [None]
  - RENAL FAILURE [None]
